FAERS Safety Report 4785772-9 (Version None)
Quarter: 2005Q3

REPORT INFORMATION
  Report Type: 
  Country: None (occurrence: None)
  Receive Date: 20050929
  Receipt Date: 20050921
  Transmission Date: 20060218
  Serious: Yes (Hospitalization)
  Sender: FDA-Public Use
  Company Number: 216735

PATIENT
  Age: 50 Year
  Sex: Male

DRUGS (6)
  1. XOLAIR (OMALIZUMAB) PWDR + SOLVENT, INJECTION SOLN, 150MG [Suspect]
     Indication: ASTHMA
     Dosage: 150 MG, 1/MONTH, SUBCUTANEOUS
     Route: 058
     Dates: start: 20050420, end: 20050601
  2. ORAL STEROIDS (STEROID NOS) [Concomitant]
  3. QVAR (BECLOMETHASONE DIPROPIONATE) [Concomitant]
  4. ALBUTEROL (ALBUTEROL, ALBUTEROL SULFATE) [Concomitant]
  5. NORTRIPTYLINE (NORTRIPTYLINE HYDROCHLORIDE) [Concomitant]
  6. TYLENOL #3 (UNITED STATES) (ACETAMINOPHEN, CODEINE PHOSPHATE) [Concomitant]

REACTIONS (13)
  - ALLERGIC GRANULOMATOUS ANGIITIS [None]
  - DIFFICULTY IN WALKING [None]
  - DISORIENTATION [None]
  - HAEMORRHAGE [None]
  - HEPATIC CYST [None]
  - HYPERTENSION [None]
  - INGUINAL MASS [None]
  - LUNG NEOPLASM [None]
  - MONONEUROPATHY MULTIPLEX [None]
  - NORMOCHROMIC NORMOCYTIC ANAEMIA [None]
  - REFUSAL OF TREATMENT BY PATIENT [None]
  - RENAL SCAN ABNORMAL [None]
  - RETROPERITONEAL NEOPLASM [None]
